FAERS Safety Report 8081050-3 (Version None)
Quarter: 2012Q1

REPORT INFORMATION
  Report Type: 
  Country: None (occurrence: None)
  Receive Date: 20120130
  Receipt Date: 20120119
  Transmission Date: 20120608
  Serious: Yes (Death, Other)
  Sender: FDA-Public Use
  Company Number: JP-ACTELION-A-CH2011-56144

PATIENT
  Sex: Male
  Weight: 47 kg

DRUGS (8)
  1. AZELNIDIPINE [Concomitant]
  2. FUROSEMIDE [Concomitant]
  3. URSODIOL [Concomitant]
  4. BERAPROST SODIUM [Concomitant]
  5. WARFARIN SODIUM [Suspect]
     Indication: PULMONARY ARTERIAL HYPERTENSION
     Dosage: UNK
     Dates: end: 20111102
  6. OXYGEN [Concomitant]
  7. TRACLEER [Suspect]
     Indication: PULMONARY ARTERIAL HYPERTENSION
     Dosage: 62.5 MG, BID
     Route: 048
     Dates: start: 20111017, end: 20111019
  8. LEVOTHYROXINE SODIUM [Concomitant]

REACTIONS (3)
  - CEREBRAL HAEMORRHAGE [None]
  - CARDIAC FAILURE [None]
  - CONCOMITANT DISEASE AGGRAVATED [None]
